FAERS Safety Report 23755561 (Version 1)
Quarter: 2024Q2

REPORT INFORMATION
  Report Type: Spontaneous
  Country: AU (occurrence: AU)
  Receive Date: 20240418
  Receipt Date: 20240418
  Transmission Date: 20240715
  Serious: Yes (Other)
  Sender: FDA-Public Use
  Company Number: AU-BAXTER-2024BAX016684

PATIENT
  Age: 62 Year
  Sex: Male

DRUGS (19)
  1. DOXORUBICIN [Suspect]
     Active Substance: DOXORUBICIN
     Indication: Mantle cell lymphoma
     Dosage: UNK, ROUTE OF ADMINISTRATION : INFORMATION NOT PROVIDED BY SPONSOR
     Route: 065
     Dates: start: 20180907, end: 20181230
  2. CYCLOPHOSPHAMIDE [Suspect]
     Active Substance: CYCLOPHOSPHAMIDE
     Indication: Mantle cell lymphoma
     Dosage: UNK, ROUTE OF ADMINISTRATION : INFORMATION NOT PROVIDED BY SPONSOR
     Route: 065
     Dates: start: 20180907, end: 20181230
  3. BENDAMUSTINE HYDROCHLORIDE [Suspect]
     Active Substance: BENDAMUSTINE HYDROCHLORIDE
     Indication: Mantle cell lymphoma
     Dosage: UNK, ROUTE OF ADMINISTRATION : INFORMATION NOT PROVIDED BY SPONSOR
     Route: 065
     Dates: start: 20210809, end: 20211015
  4. CARMUSTINE [Suspect]
     Active Substance: CARMUSTINE
     Indication: Mantle cell lymphoma
     Dosage: UNK, ROUTE OF ADMINISTRATION : INFORMATION NOT PROVIDED BY SPONSOR
     Route: 065
     Dates: start: 20190201, end: 20190201
  5. CYTARABINE [Suspect]
     Active Substance: CYTARABINE
     Indication: Mantle cell lymphoma
     Dosage: UNK, ROUTE OF ADMINISTRATION : INFORMATION NOT PROVIDED BY SPONSOR
     Route: 065
     Dates: start: 20210809, end: 20211015
  6. CYTARABINE [Suspect]
     Active Substance: CYTARABINE
     Dosage: UNK, ROUTE OF ADMINISTRATION : INFORMATION NOT PROVIDED BY SPONSOR
     Route: 065
     Dates: start: 20190201, end: 20190201
  7. ETOPOSIDE [Suspect]
     Active Substance: ETOPOSIDE
     Dosage: UNK, ROUTE OF ADMINISTRATION : INFORMATION NOT PROVIDED BY SPONSOR
     Route: 065
     Dates: start: 20190201, end: 20190201
  8. IBRUTINIB [Suspect]
     Active Substance: IBRUTINIB
     Indication: Mantle cell lymphoma
     Dosage: UNK, ROUTE OF ADMINISTRATION : INFORMATION NOT PROVIDED BY SPONSOR
     Route: 065
     Dates: start: 20210120, end: 20210728
  9. MELPHALAN [Suspect]
     Active Substance: MELPHALAN
     Dosage: UNK, ROUTE OF ADMINISTRATION : INFORMATION NOT PROVIDED BY SPONSOR
     Route: 065
     Dates: start: 20190201
  10. PREDNISONE [Suspect]
     Active Substance: PREDNISONE
     Indication: Mantle cell lymphoma
     Dosage: UNK, ROUTE OF ADMINISTRATION : INFORMATION NOT PROVIDED BY SPONSOR
     Route: 065
     Dates: start: 20180907, end: 20181230
  11. RITUXIMAB [Suspect]
     Active Substance: RITUXIMAB
     Indication: Mantle cell lymphoma
     Dosage: UNK, ROUTE OF ADMINISTRATION : INFORMATION NOT PROVIDED BY SPONSOR
     Route: 065
     Dates: start: 20180907, end: 20181230
  12. RITUXIMAB [Suspect]
     Active Substance: RITUXIMAB
     Dosage: UNK, ROUTE OF ADMINISTRATION : INFORMATION NOT PROVIDED BY SPONSOR
     Route: 065
     Dates: start: 20210809, end: 20211015
  13. VINCRISTINE SULFATE [Suspect]
     Active Substance: VINCRISTINE SULFATE
     Indication: Mantle cell lymphoma
     Dosage: UNK, ROUTE OF ADMINISTRATION : INFORMATION NOT PROVIDED BY SPONSOR
     Route: 065
     Dates: start: 20180907, end: 20181230
  14. ZANUBRUTINIB [Suspect]
     Active Substance: ZANUBRUTINIB
     Indication: Mantle cell lymphoma
     Dosage: UNK, ROUTE OF ADMINISTRATION : INFORMATION NOT PROVIDED BY SPONSOR
     Route: 065
     Dates: start: 20230131
  15. MAGNESIUM ASPARTATE DIHYDRATE [Concomitant]
     Active Substance: MAGNESIUM ASPARTATE DIHYDRATE
     Dosage: UNK (AUST L UNKNWON)
     Route: 065
  16. SULFAMETHOXAZOLE\TRIMETHOPRIM [Concomitant]
     Active Substance: SULFAMETHOXAZOLE\TRIMETHOPRIM
     Dosage: UNK
     Route: 065
  17. CALCIUM CARBONATE\VITAMIN D [Concomitant]
     Active Substance: CALCIUM CARBONATE\VITAMIN D
     Dosage: UNK
     Route: 065
  18. FOLIC ACID [Concomitant]
     Active Substance: FOLIC ACID
     Dosage: UNK
     Route: 065
  19. VALACYCLOVIR HYDROCHLORIDE [Concomitant]
     Active Substance: VALACYCLOVIR HYDROCHLORIDE
     Dosage: UNK
     Route: 065

REACTIONS (4)
  - Mantle cell lymphoma recurrent [Unknown]
  - Pancytopenia [Unknown]
  - Polychromasia [Unknown]
  - Disease progression [Unknown]
